FAERS Safety Report 8152914-7 (Version None)
Quarter: 2012Q1

REPORT INFORMATION
  Report Type: 
  Country: None (occurrence: None)
  Receive Date: 20120221
  Receipt Date: 20120216
  Transmission Date: 20120608
  Serious: Yes (Other)
  Sender: FDA-Public Use
  Company Number: US-PFIZER INC-2012037226

PATIENT
  Sex: Female
  Weight: 84.35 kg

DRUGS (5)
  1. LIPITOR [Suspect]
     Indication: BLOOD TRIGLYCERIDES INCREASED
  2. LEVOTHYROXINE [Concomitant]
     Indication: HYPOTHYROIDISM
     Dosage: UNK
  3. PANTOPRAZOLE [Suspect]
     Indication: GASTRIC ULCER
     Dosage: 40 MG, 1X/DAY
     Route: 048
     Dates: start: 20120209
  4. BYSTOLIC [Concomitant]
     Indication: HYPERTENSION
     Dosage: 5 MG, 2X/DAY
  5. LIPITOR [Suspect]
     Indication: BLOOD CHOLESTEROL INCREASED
     Dosage: 10 MG, 1X/DAY
     Route: 048
     Dates: start: 20110601, end: 20120208

REACTIONS (6)
  - EATING DISORDER [None]
  - ABNORMAL FAECES [None]
  - GASTRIC ULCER [None]
  - GASTROOESOPHAGEAL REFLUX DISEASE [None]
  - WEIGHT DECREASED [None]
  - DIARRHOEA [None]
